FAERS Safety Report 4981273-3 (Version None)
Quarter: 2006Q1

REPORT INFORMATION
  Report Type: 
  Country: None (occurrence: None)
  Receive Date: 20060317
  Receipt Date: 20060320
  Transmission Date: 20060701
  Serious: Yes (Other)
  Sender: FDA-Public Use
  Company Number: 2006BH007238

PATIENT
  Age: 44 Year
  Sex: Male
  Weight: 132.9039 kg

DRUGS (2)
  1. ANTICOAGULANT 4% SODIUM CITRATE DEVICE [Suspect]
     Indication: PLASMAPHERESIS
     Dosage: 250 ML; ONCE; IV
     Route: 042
     Dates: start: 20060318, end: 20060318
  2. SODIUM CHLORIDE 0.9% [Suspect]
     Indication: PLASMAPHERESIS
     Dosage: ONCE; IV
     Route: 042
     Dates: start: 20060318, end: 20060318

REACTIONS (7)
  - ASTHENIA [None]
  - CARDIAC FLUTTER [None]
  - CHROMATURIA [None]
  - DIZZINESS [None]
  - MEDICAL DEVICE COMPLICATION [None]
  - PROCEDURAL COMPLICATION [None]
  - VENTRICULAR EXTRASYSTOLES [None]
